FAERS Safety Report 12653156 (Version 5)
Quarter: 2017Q4

REPORT INFORMATION
  Report Type: Report from Study
  Country: None (occurrence: CA)
  Receive Date: 20160815
  Receipt Date: 20171030
  Transmission Date: 20180320
  Serious: Yes (Other)
  Sender: FDA-Public Use
  Company Number: CA-ABBVIE-15K-028-1467563-00

PATIENT
  Age: 39 Year
  Sex: Male

DRUGS (4)
  1. HUMIRA [Suspect]
     Active Substance: ADALIMUMAB
     Route: 058
     Dates: start: 2016
  2. HUMIRA [Suspect]
     Active Substance: ADALIMUMAB
     Route: 058
     Dates: start: 201506, end: 20160807
  3. HUMIRA [Suspect]
     Active Substance: ADALIMUMAB
     Indication: COLITIS ULCERATIVE
     Route: 058
     Dates: start: 20141229, end: 201506
  4. CORTISONE [Concomitant]
     Active Substance: CORTISONE\HYDROCORTISONE
     Indication: COLITIS ULCERATIVE
     Dates: start: 201602

REACTIONS (8)
  - Drug effect incomplete [Recovered/Resolved]
  - Rectal haemorrhage [Recovered/Resolved]
  - Inappropriate schedule of drug administration [Recovered/Resolved]
  - Malaise [Not Recovered/Not Resolved]
  - Haematochezia [Unknown]
  - Haematochezia [Recovered/Resolved]
  - Pain [Not Recovered/Not Resolved]
  - Large intestine polyp [Not Recovered/Not Resolved]

NARRATIVE: CASE EVENT DATE: 2015
